FAERS Safety Report 17069796 (Version 1)
Quarter: 2019Q4

REPORT INFORMATION
  Report Type: Spontaneous
  Country: US (occurrence: US)
  Receive Date: 20191125
  Receipt Date: 20191125
  Transmission Date: 20200122
  Serious: No
  Sender: FDA-Public Use
  Company Number: US-ALLERGAN-1857273US

PATIENT
  Sex: Female

DRUGS (1)
  1. DARIFENACIN - BP [Suspect]
     Active Substance: DARIFENACIN
     Indication: MICTURITION URGENCY
     Dosage: UNK
     Route: 065

REACTIONS (1)
  - Drug ineffective [Unknown]

NARRATIVE: CASE EVENT DATE: 201812
